FAERS Safety Report 8092207-X (Version None)
Quarter: 2012Q1

REPORT INFORMATION
  Report Type: 
  Country: None (occurrence: None)
  Receive Date: 20120129
  Receipt Date: 20111108
  Transmission Date: 20120608
  Serious: No
  Sender: FDA-Public Use
  Company Number: US-ABBOTT-11P-163-0873122-00

PATIENT
  Sex: Female
  Weight: 72.64 kg

DRUGS (3)
  1. METHOTREXATE [Concomitant]
     Indication: PSORIATIC ARTHROPATHY
  2. HUMIRA [Suspect]
     Indication: PSORIATIC ARTHROPATHY
     Dates: start: 20110901
  3. ZOLOFT [Concomitant]
     Indication: ANXIETY

REACTIONS (1)
  - HYPOAESTHESIA [None]
